FAERS Safety Report 10223076 (Version 5)
Quarter: 2014Q3

REPORT INFORMATION
  Report Type: Report from Study
  Country: CA (occurrence: CA)
  Receive Date: 20140607
  Receipt Date: 20140901
  Transmission Date: 20150326
  Serious: Yes (Death, Hospitalization, Other)
  Sender: FDA-Public Use
  Company Number: PHHY2014CA057248

PATIENT
  Age: 75 Year
  Sex: Female

DRUGS (9)
  1. SANDOSTATIN [Suspect]
     Active Substance: OCTREOTIDE ACETATE
     Indication: SUBILEUS
  2. SANDOSTATIN LAR DEPOT [Suspect]
     Active Substance: OCTREOTIDE ACETATE
     Indication: OFF LABEL USE
  3. SANDOSTATIN [Suspect]
     Active Substance: OCTREOTIDE ACETATE
     Indication: PERITONEAL NEOPLASM
  4. SANDOSTATIN LAR DEPOT [Suspect]
     Active Substance: OCTREOTIDE ACETATE
     Indication: PERITONEAL NEOPLASM
  5. SANDOSTATIN [Suspect]
     Active Substance: OCTREOTIDE ACETATE
     Indication: OVARIAN NEOPLASM
     Dosage: 100 UG, TID
     Route: 058
     Dates: start: 20140410, end: 201405
  6. SANDOSTATIN LAR DEPOT [Suspect]
     Active Substance: OCTREOTIDE ACETATE
     Indication: SUBILEUS
  7. CAELYX [Concomitant]
     Active Substance: DOXORUBICIN HYDROCHLORIDE
     Dosage: UNK UKN, QMO
  8. SANDOSTATIN [Suspect]
     Active Substance: OCTREOTIDE ACETATE
     Indication: OFF LABEL USE
  9. SANDOSTATIN LAR DEPOT [Suspect]
     Active Substance: OCTREOTIDE ACETATE
     Indication: OVARIAN NEOPLASM
     Dosage: 20 MG, EVERY 4 WEEKS
     Route: 030
     Dates: start: 20140502

REACTIONS (9)
  - Vomiting [Unknown]
  - Food intolerance [Unknown]
  - Blood magnesium decreased [Unknown]
  - Asthenia [Unknown]
  - Heart rate increased [Unknown]
  - Fatigue [Unknown]
  - Decreased appetite [Unknown]
  - Death [Fatal]
  - Wound [Unknown]

NARRATIVE: CASE EVENT DATE: 20140502
